FAERS Safety Report 10285848 (Version 2)
Quarter: 2014Q4

REPORT INFORMATION
  Report Type: Spontaneous
  Country: US (occurrence: None)
  Receive Date: 20140703
  Receipt Date: 20141112
  Transmission Date: 20150528
  Serious: Yes (Hospitalization)
  Sender: FDA-Public Use
  Company Number: UNT-2014-001842

PATIENT
  Age: 54 Year
  Sex: Female
  Weight: 100.3 kg

DRUGS (2)
  1. REVATIO (SILDENAFIL CITRATE) [Concomitant]
  2. REMODULIN [Suspect]
     Active Substance: TREPROSTINIL
     Indication: COR PULMONALE CHRONIC
     Dosage: 0.112UG/KG,
     Route: 041
     Dates: start: 20130519

REACTIONS (1)
  - Device dislocation [None]

NARRATIVE: CASE EVENT DATE: 20140602
